FAERS Safety Report 8805880 (Version 1)
Quarter: 2012Q4

REPORT INFORMATION
  Report Type: Spontaneous
  Country: US (occurrence: None)
  Receive Date: 20120918
  Receipt Date: 20120918
  Transmission Date: 20130627
  Serious: Yes (Other)
  Sender: FDA-Public Use
  Company Number: DSA_59602_2012

PATIENT
  Age: 60 Year
  Sex: Female

DRUGS (11)
  1. WELLBUTRIN [Suspect]
     Indication: DEPRESSION
     Dosage: (DF)
  2. PAROXETINE [Suspect]
     Indication: DEPRESSION
     Dosage: (DF)
  3. TRAZODONE [Suspect]
     Indication: DEPRESSION
     Dosage: (DF)
  4. LYRICA [Suspect]
     Indication: FIBROMYALGIA
     Dosage: (DF)
  5. LEVOTHYROXINE [Suspect]
     Indication: HYPOTHYROIDISM
     Dosage: (DF)
  6. PROPANOLOL [Suspect]
     Indication: BLOOD PRESSURE ABNORMAL
     Dosage: (DF)
  7. ALBUTEROL SULFATE [Suspect]
     Indication: MULTIPLE ALLERGIES
     Dosage: (DF)
  8. OMEPRAZOLE [Suspect]
     Indication: GASTRIC DISORDER
     Dosage: (DF)
  9. FIORICET [Suspect]
     Indication: MIGRAINE
     Dosage: (DF)
  10. THERAPEUTIC RADIOPHARMACEUTICALS [Suspect]
     Indication: PRODUCT USED FOR UNKNOWN INDICATION
     Dosage: (DF)
  11. UNKNOWN [Suspect]
     Indication: PRODUCT USED FOR UNKNOWN INDICATION

REACTIONS (4)
  - Liposarcoma [None]
  - Alopecia [None]
  - Hair growth abnormal [None]
  - Blood cholesterol increased [None]
